FAERS Safety Report 25582524 (Version 1)
Quarter: 2025Q3

REPORT INFORMATION
  Report Type: Spontaneous
  Country: US (occurrence: US)
  Receive Date: 20250720
  Receipt Date: 20250720
  Transmission Date: 20251021
  Serious: Yes (Other)
  Sender: SANOFI AVENTIS
  Company Number: US-DialogSolutions-SAAVPROD-PI799527-C1

PATIENT
  Age: 38 Year
  Sex: Male

DRUGS (3)
  1. RIFAMPIN [Suspect]
     Active Substance: RIFAMPIN
     Indication: Staphylococcal sepsis
  2. CEFEPIME [Concomitant]
     Active Substance: CEFEPIME HYDROCHLORIDE
     Indication: Staphylococcal sepsis
  3. VANCOMYCIN [Concomitant]
     Active Substance: VANCOMYCIN
     Indication: Staphylococcal sepsis

REACTIONS (3)
  - Methaemoglobinaemia [Recovered/Resolved]
  - Hypoxia [Recovered/Resolved]
  - Glucose-6-phosphate dehydrogenase deficiency [Recovering/Resolving]
